FAERS Safety Report 10083965 (Version 3)
Quarter: 2014Q2

REPORT INFORMATION
  Report Type: Spontaneous
  Country: GB (occurrence: GB)
  Receive Date: 20140417
  Receipt Date: 20140527
  Transmission Date: 20141212
  Serious: Yes (Death, Other)
  Sender: FDA-Public Use
  Company Number: PHFR2013GB004462

PATIENT
  Age: 57 Year
  Sex: Male

DRUGS (3)
  1. AFINITOR [Suspect]
     Indication: RENAL CELL CARCINOMA
     Dosage: 10 MG, DAILY
     Route: 048
     Dates: start: 201206, end: 201301
  2. AFINITOR [Interacting]
     Dosage: 20 MG, DAILY
     Route: 048
     Dates: start: 201301, end: 201302
  3. RIFATER [Interacting]
     Indication: TUBERCULOSIS

REACTIONS (4)
  - Death [Fatal]
  - Tuberculosis [Recovered/Resolved with Sequelae]
  - Malignant neoplasm progression [Not Recovered/Not Resolved]
  - Drug interaction [Recovered/Resolved with Sequelae]
